FAERS Safety Report 7802692-3 (Version None)
Quarter: 2011Q4

REPORT INFORMATION
  Report Type: 
  Country: None (occurrence: None)
  Receive Date: 20111007
  Receipt Date: 20111005
  Transmission Date: 20120403
  Serious: Yes (Hospitalization, Other)
  Sender: FDA-Public Use
  Company Number: PHHY2011US12580

PATIENT
  Sex: Female

DRUGS (7)
  1. ASPIRIN [Concomitant]
     Dosage: UNK UKN, UNK
  2. EXTAVIA [Suspect]
     Dosage: 0.25 MG, QOD
     Route: 058
  3. EXTAVIA [Suspect]
     Dosage: 0.3 MG, QOD
     Route: 058
  4. EXTAVIA [Suspect]
     Indication: MULTIPLE SCLEROSIS
     Dosage: 0.25 MG, QOD
     Route: 058
     Dates: start: 20100626, end: 20110401
  5. EXTAVIA [Suspect]
     Dosage: 1 ML, QOD
     Route: 058
     Dates: start: 20110505, end: 20111001
  6. NEURONTIN [Concomitant]
     Dosage: UNK UKN, UNK
  7. DIOVAN [Concomitant]
     Dosage: UNK UKN, UNK

REACTIONS (9)
  - HERPES ZOSTER [None]
  - CONSTIPATION [None]
  - PAIN [None]
  - FEELING ABNORMAL [None]
  - MULTIPLE SCLEROSIS RELAPSE [None]
  - MUSCLE SPASMS [None]
  - MUSCULOSKELETAL STIFFNESS [None]
  - DEPRESSED MOOD [None]
  - DEATH OF RELATIVE [None]
